FAERS Safety Report 24980245 (Version 1)
Quarter: 2025Q1

REPORT INFORMATION
  Report Type: Spontaneous
  Country: CN (occurrence: CN)
  Receive Date: 20250218
  Receipt Date: 20250218
  Transmission Date: 20250409
  Serious: Yes (Life-Threatening)
  Sender: ACCORD
  Company Number: CN-MLMSERVICE-20250203-PI387972-00165-1

PATIENT
  Age: 52 Year
  Sex: Female

DRUGS (10)
  1. GEMCITABINE [Suspect]
     Active Substance: GEMCITABINE
     Indication: Extraskeletal osteosarcoma
     Dates: start: 20240804
  2. OXALIPLATIN [Suspect]
     Active Substance: OXALIPLATIN
     Indication: Extraskeletal osteosarcoma
     Dates: start: 20240804
  3. OXALIPLATIN [Suspect]
     Active Substance: OXALIPLATIN
     Indication: Rectal cancer
     Dates: start: 20240804
  4. OXALIPLATIN [Suspect]
     Active Substance: OXALIPLATIN
     Indication: Metastases to liver
     Dates: start: 20240804
  5. OXALIPLATIN [Suspect]
     Active Substance: OXALIPLATIN
     Indication: Metastases to peritoneum
     Dates: start: 20240804
  6. OXALIPLATIN [Suspect]
     Active Substance: OXALIPLATIN
     Indication: Disease progression
     Dates: start: 20240804
  7. GEMCITABINE [Suspect]
     Active Substance: GEMCITABINE
     Indication: Metastases to liver
     Dates: start: 20240804
  8. GEMCITABINE [Suspect]
     Active Substance: GEMCITABINE
     Indication: Metastases to peritoneum
     Dates: start: 20240804
  9. GEMCITABINE [Suspect]
     Active Substance: GEMCITABINE
     Indication: Disease progression
     Dates: start: 20240804
  10. GEMCITABINE [Suspect]
     Active Substance: GEMCITABINE
     Indication: Rectal cancer
     Dates: start: 20240804

REACTIONS (2)
  - Leukopenia [Unknown]
  - Thrombocytopenia [Unknown]

NARRATIVE: CASE EVENT DATE: 20240101
